FAERS Safety Report 18276030 (Version 1)
Quarter: 2020Q3

REPORT INFORMATION
  Report Type: Spontaneous
  Country: US (occurrence: US)
  Receive Date: 20200916
  Receipt Date: 20200916
  Transmission Date: 20201103
  Serious: No
  Sender: FDA-Public Use
  Company Number: US-SA-2020SA251455

PATIENT

DRUGS (2)
  1. GLYCOLIC ACID [Suspect]
     Active Substance: GLYCOLIC ACID
  2. DUPIXENT [Suspect]
     Active Substance: DUPILUMAB
     Indication: ASTHMA
     Dosage: 300 MG, QOW
     Route: 058
     Dates: start: 20200227

REACTIONS (2)
  - Product use in unapproved indication [Unknown]
  - Rash vesicular [Recovered/Resolved]

NARRATIVE: CASE EVENT DATE: 2020
